FAERS Safety Report 9708061 (Version 2)
Quarter: 2014Q1

REPORT INFORMATION
  Report Type: Report from Study
  Country: DE (occurrence: DE)
  Receive Date: 20131125
  Receipt Date: 20140212
  Transmission Date: 20141002
  Serious: Yes (Hospitalization)
  Sender: FDA-Public Use
  Company Number: DE-PFIZER INC-2013332477

PATIENT
  Age: 73 Year
  Sex: Female
  Weight: 55 kg

DRUGS (2)
  1. EXEMESTANE [Suspect]
     Indication: BREAST CANCER FEMALE
     Dosage: 25 MG/DAY
     Route: 048
     Dates: start: 20130621, end: 20131017
  2. AFINITOR [Suspect]
     Indication: BREAST CANCER FEMALE
     Dosage: 5 MG/DAY
     Route: 048
     Dates: start: 20130621, end: 20131017

REACTIONS (8)
  - Dyspnoea at rest [Recovered/Resolved with Sequelae]
  - Pleural effusion [Recovered/Resolved with Sequelae]
  - Dyspnoea exertional [Recovered/Resolved with Sequelae]
  - Nasopharyngitis [Recovered/Resolved]
  - Rosacea [Recovered/Resolved]
  - Diarrhoea [Recovered/Resolved]
  - Headache [Recovered/Resolved]
  - Nausea [Recovered/Resolved]
